FAERS Safety Report 25615036 (Version 1)
Quarter: 2025Q3

REPORT INFORMATION
  Report Type: Spontaneous
  Country: GB (occurrence: GB)
  Receive Date: 20250729
  Receipt Date: 20250729
  Transmission Date: 20251020
  Serious: Yes (Other)
  Sender: TEVA
  Company Number: GB-MHRA-EMIS-4937-da9b881c-c094-4e8d-9980-124749c07070

PATIENT
  Age: 74 Year
  Sex: Female
  Weight: 62 kg

DRUGS (2)
  1. FLUVASTATIN [Suspect]
     Active Substance: FLUVASTATIN SODIUM
     Indication: Product used for unknown indication
     Dosage: AT NIGHT
     Route: 065
     Dates: start: 20250626, end: 20250721
  2. FLUVASTATIN [Concomitant]
     Active Substance: FLUVASTATIN SODIUM
     Indication: Product used for unknown indication
     Dosage: AT NIGHT
     Dates: start: 20250626, end: 20250721

REACTIONS (2)
  - Gastrooesophageal reflux disease [Recovered/Resolved]
  - Insomnia [Recovered/Resolved]

NARRATIVE: CASE EVENT DATE: 20250717
